FAERS Safety Report 5702670-4 (Version None)
Quarter: 2008Q2

REPORT INFORMATION
  Report Type: 
  Country: None (occurrence: None)
  Receive Date: 20080411
  Receipt Date: 20080115
  Transmission Date: 20081010
  Serious: No
  Sender: FDA-Public Use
  Company Number: US-ASTRAZENECA-2008UW00946

PATIENT
  Sex: Male

DRUGS (2)
  1. ATENOLOL [Suspect]
     Route: 048
  2. NORVASC [Suspect]

REACTIONS (1)
  - BLOOD PRESSURE INCREASED [None]
